FAERS Safety Report 10853763 (Version 2)
Quarter: 2015Q2

REPORT INFORMATION
  Report Type: Spontaneous
  Country: GB (occurrence: GB)
  Receive Date: 20150223
  Receipt Date: 20150427
  Transmission Date: 20150821
  Serious: Yes (Other)
  Sender: FDA-Public Use
  Company Number: GB-JNJFOC-20150212077

PATIENT
  Age: 75 Year
  Sex: Male
  Weight: 70 kg

DRUGS (3)
  1. XARELTO [Suspect]
     Active Substance: RIVAROXABAN
     Indication: ATRIAL FIBRILLATION
     Route: 048
     Dates: start: 20141214, end: 20150108
  2. OMEPRAZOLE. [Concomitant]
     Active Substance: OMEPRAZOLE
     Route: 065
  3. XARELTO [Suspect]
     Active Substance: RIVAROXABAN
     Indication: CEREBROVASCULAR ACCIDENT PROPHYLAXIS
     Route: 048
     Dates: start: 20141214, end: 20150108

REACTIONS (11)
  - Fatigue [Recovering/Resolving]
  - Dyspnoea [Recovering/Resolving]
  - Cough [Recovering/Resolving]
  - Nausea [Recovering/Resolving]
  - Swelling face [Recovering/Resolving]
  - Decreased appetite [Recovering/Resolving]
  - Dry mouth [Recovering/Resolving]
  - Local swelling [Recovering/Resolving]
  - Haemoptysis [Recovering/Resolving]
  - Malaise [Recovering/Resolving]
  - Joint swelling [Recovered/Resolved]

NARRATIVE: CASE EVENT DATE: 20141214
